FAERS Safety Report 5955947-1 (Version None)
Quarter: 2008Q4

REPORT INFORMATION
  Report Type: 
  Country: None (occurrence: None)
  Receive Date: 20081112
  Receipt Date: 20081028
  Transmission Date: 20090506
  Serious: Yes (Other)
  Sender: FDA-Public Use
  Company Number: DEP_00168_2008

PATIENT
  Age: 48 Year
  Sex: Male

DRUGS (2)
  1. PROQUIN (NOT SPECIFIED) [Suspect]
     Indication: OFF LABEL USE
     Dosage: (500 MG QD ORAL)
     Route: 048
     Dates: start: 20081006, end: 20081027
  2. PROQUIN (NOT SPECIFIED) [Suspect]
     Indication: PROSTATITIS
     Dosage: (500 MG QD ORAL)
     Route: 048
     Dates: start: 20081006, end: 20081027

REACTIONS (4)
  - ARTHRALGIA [None]
  - BLOOD PRESSURE INCREASED [None]
  - CHEST PAIN [None]
  - LARYNGEAL OEDEMA [None]
